FAERS Safety Report 22320084 (Version 1)
Quarter: 2023Q2

REPORT INFORMATION
  Report Type: Spontaneous
  Country: US (occurrence: US)
  Receive Date: 20230515
  Receipt Date: 20230515
  Transmission Date: 20230721
  Serious: Yes (Life-Threatening, Other)
  Sender: FDA-Public Use
  Company Number: US-002147023-NVSC2023US110426

PATIENT
  Age: 48 Year
  Sex: Male

DRUGS (1)
  1. IBUPROFEN [Suspect]
     Active Substance: IBUPROFEN
     Indication: Back pain
     Dosage: 10-12 TABLETS, 600 MG EVERY 4-6 HOURS ALMOST DAILY FOR ABOUT ONE YEAR
     Route: 065

REACTIONS (3)
  - Hypokalaemia [Recovering/Resolving]
  - Metabolic acidosis [Recovering/Resolving]
  - Intentional product misuse [Unknown]
